FAERS Safety Report 5020518-0 (Version None)
Quarter: 2006Q2

REPORT INFORMATION
  Report Type: 
  Country: None (occurrence: None)
  Receive Date: 20060607
  Receipt Date: 20060301
  Transmission Date: 20061013
  Serious: Yes (Hospitalization)
  Sender: FDA-Public Use
  Company Number: US-AVENTIS-200612012US

PATIENT
  Sex: Female

DRUGS (8)
  1. LANTUS [Suspect]
     Indication: DIABETES MELLITUS INSULIN-DEPENDENT
     Dosage: DOSE UNIT: UNITS
     Dates: start: 20051101, end: 20060221
  2. DILAUDID [Concomitant]
     Dosage: DOSE: UNKNOWN
  3. PREVACID [Concomitant]
     Dosage: DOSE: UNKNOWN
  4. SYNTHROID [Concomitant]
     Dosage: DOSE: UNKNOWN
  5. COLACE [Concomitant]
     Dosage: DOSE: UNKNOWN
  6. ZOFRAN [Concomitant]
     Dosage: DOSE: UNKNOWN
  7. ORAL CONTRACEPTIVE [Concomitant]
     Dosage: DOSE: UNKNOWN
  8. REGULAR INSULIN [Concomitant]
     Dosage: DOSE: UNKNOWN

REACTIONS (2)
  - DIABETIC KETOACIDOSIS [None]
  - PANCREATITIS [None]
